FAERS Safety Report 10902023 (Version 1)
Quarter: 2015Q1

REPORT INFORMATION
  Report Type: Other
  Country: FR (occurrence: FR)
  Receive Date: 20150310
  Receipt Date: 20150310
  Transmission Date: 20150721
  Serious: Yes (Hospitalization)
  Sender: FDA-Public Use
  Company Number: FR-ENDO PHARMACEUTICALS INC-2015-000031

PATIENT
  Age: 80 Year
  Sex: Female

DRUGS (2)
  1. NAPROXEN TABLETS [Suspect]
     Active Substance: NAPROXEN
     Indication: ARTHRALGIA
     Route: 065
  2. NAPROXEN TABLETS [Suspect]
     Active Substance: NAPROXEN
     Route: 065

REACTIONS (1)
  - Pulmonary eosinophilia [Recovered/Resolved]
